FAERS Safety Report 21274243 (Version 7)
Quarter: 2023Q1

REPORT INFORMATION
  Report Type: Other
  Country: CN (occurrence: None)
  Receive Date: 20220831
  Receipt Date: 20230328
  Transmission Date: 20230417
  Serious: Yes (Hospitalization)
  Sender: FDA-Public Use
  Company Number: CN-ROCHE-3167690

PATIENT
  Age: 68 Year
  Sex: Male
  Weight: 79 kg

DRUGS (16)
  1. ALECTINIB [Suspect]
     Active Substance: ALECTINIB
     Indication: Lung cancer metastatic
     Dosage: DATE OF MOST RECENT DOSE PRIOR TO ONSET OF ADVERSE EVENT: 28/JUL/2022 600 MG
     Route: 048
     Dates: start: 20211028
  2. ZOLEDRONIC ACID [Concomitant]
     Active Substance: ZOLEDRONIC ACID
     Dosage: PROTECTIVE BONE
     Route: 042
     Dates: start: 20220705, end: 20220705
  3. RIVAROXABAN [Concomitant]
     Active Substance: RIVAROXABAN
     Dosage: THROMBOSIS PREVENTION
     Route: 048
     Dates: start: 20220705, end: 20220718
  4. OXYCODONE HYDROCHLORIDE [Concomitant]
     Active Substance: OXYCODONE HYDROCHLORIDE
     Indication: Analgesic therapy
     Dosage: PREVENT PAIN
     Route: 048
     Dates: start: 20220705, end: 20220711
  5. OXYCODONE HYDROCHLORIDE [Concomitant]
     Active Substance: OXYCODONE HYDROCHLORIDE
     Route: 048
     Dates: start: 20220825, end: 20220831
  6. BRIGATINIB [Concomitant]
     Active Substance: BRIGATINIB
     Dates: start: 20220822, end: 20220822
  7. LACTULOSE [Concomitant]
     Active Substance: LACTULOSE
     Route: 048
     Dates: start: 20220826, end: 20220901
  8. OMEPRAZOLE [Concomitant]
     Active Substance: OMEPRAZOLE
     Route: 050
     Dates: start: 20220728, end: 20220728
  9. ERTAPENEM [Concomitant]
     Active Substance: ERTAPENEM
     Route: 050
     Dates: start: 20220728, end: 20220728
  10. GLUTATHIONE [Concomitant]
     Active Substance: GLUTATHIONE
     Route: 050
     Dates: start: 20220728, end: 20220728
  11. HERBALS [Concomitant]
     Active Substance: HERBALS
     Route: 050
     Dates: start: 20220728, end: 20220728
  12. ASPIRIN DL-LYSINE [Concomitant]
     Active Substance: ASPIRIN DL-LYSINE
     Indication: Analgesic therapy
     Route: 050
     Dates: start: 20220728, end: 20220728
  13. CONFORMAL [Concomitant]
     Dates: start: 2017
  14. ISOSORBIDE DINITRATE [Concomitant]
     Active Substance: ISOSORBIDE DINITRATE
  15. ASPIRIN [Concomitant]
     Active Substance: ASPIRIN
  16. CANDESARTAN [Concomitant]
     Active Substance: CANDESARTAN

REACTIONS (2)
  - Cholecystitis acute [Recovered/Resolved]
  - Albuminuria [Recovering/Resolving]

NARRATIVE: CASE EVENT DATE: 20220729
